FAERS Safety Report 6025292-7 (Version None)
Quarter: 2008Q4

REPORT INFORMATION
  Report Type: 
  Country: None (occurrence: None)
  Receive Date: 20081231
  Receipt Date: 20081222
  Transmission Date: 20090506
  Serious: Yes (Hospitalization)
  Sender: FDA-Public Use
  Company Number: PHHY2008NL30755

PATIENT
  Sex: Male

DRUGS (6)
  1. DIOVAN [Suspect]
     Indication: HYPERTENSION
     Dosage: 1 DAILY DOSE 80MG
     Dates: start: 20071120
  2. CIALIS [Suspect]
     Indication: ERECTILE DYSFUNCTION
     Dosage: TIMES PER AS NECESSARY 20MG
     Dates: start: 20060103
  3. METOPROLOL TARTRATE [Concomitant]
     Dosage: 1 DAILY DOSE 80 MG
  4. ASPIRIN [Concomitant]
     Dosage: 1 DAILY DOSE 80MG
     Dates: start: 20070702
  5. ISOSORBIDE DINITRATE [Concomitant]
     Dosage: UNK
     Dates: start: 20080720
  6. SIMVASTATIN [Concomitant]
     Dosage: 1 DAILY DOSE 20MG
     Dates: start: 20070529

REACTIONS (3)
  - HEART RATE IRREGULAR [None]
  - MALAISE [None]
  - PALPITATIONS [None]
